FAERS Safety Report 7802593-0 (Version None)
Quarter: 2011Q4

REPORT INFORMATION
  Report Type: 
  Country: None (occurrence: None)
  Receive Date: 20111007
  Receipt Date: 20110923
  Transmission Date: 20120403
  Serious: Yes (Other)
  Sender: FDA-Public Use
  Company Number: US-JNJFOC-20110912235

PATIENT
  Age: 56 Year
  Sex: Female
  Weight: 53.98 kg

DRUGS (1)
  1. LISTERINE TOTAL CARE PLUS WHITENING [Suspect]
     Indication: DENTAL DISORDER PROPHYLAXIS
     Dosage: TEASPOONFUL FOR ABOUT ONE WEEK
     Route: 048
     Dates: start: 20110826, end: 20110902

REACTIONS (2)
  - ORAL DISCOMFORT [None]
  - OROPHARYNGEAL BLISTERING [None]
